APPROVED DRUG PRODUCT: NITISINONE
Active Ingredient: NITISINONE
Strength: 10MG
Dosage Form/Route: CAPSULE;ORAL
Application: A216201 | Product #003 | TE Code: AB
Applicant: ETON PHARMACEUTICALS INC
Approved: May 25, 2023 | RLD: No | RS: No | Type: RX